FAERS Safety Report 6537451-5 (Version None)
Quarter: 2010Q1

REPORT INFORMATION
  Report Type: 
  Country: None (occurrence: None)
  Receive Date: 20100114
  Receipt Date: 20100104
  Transmission Date: 20100710
  Serious: Yes (Hospitalization, Other)
  Sender: FDA-Public Use
  Company Number: PHHY2009GB49423

PATIENT
  Sex: Female

DRUGS (4)
  1. CLOZARIL [Suspect]
     Indication: SCHIZOPHRENIA
     Dosage: 600 MG, UNK
     Route: 048
     Dates: start: 20080711
  2. CLOZARIL [Suspect]
     Dosage: 2.4 G
     Dates: start: 20091106
  3. LORAZEPAM (NCH) [Suspect]
     Dosage: 12 MG
  4. LITHIUM CARBONATE [Concomitant]
     Indication: DEPRESSIVE SYMPTOM
     Dosage: 500 MG
     Route: 048
     Dates: start: 20090101

REACTIONS (3)
  - ELECTROCARDIOGRAM T WAVE ABNORMAL [None]
  - OVERDOSE [None]
  - SINUS TACHYCARDIA [None]
